FAERS Safety Report 15046099 (Version 3)
Quarter: 2018Q3

REPORT INFORMATION
  Report Type: Report from Study
  Country: JP (occurrence: JP)
  Receive Date: 20180621
  Receipt Date: 20180705
  Transmission Date: 20181010
  Serious: Yes (Hospitalization, Other)
  Sender: FDA-Public Use
  Company Number: JP-BRISTOL-MYERS SQUIBB COMPANY-BMS-2018-056127

PATIENT
  Age: 70 Year
  Sex: Male
  Weight: 50.9 kg

DRUGS (6)
  1. MYONAL                             /00287502/ [Concomitant]
     Active Substance: EPERISONE HYDROCHLORIDE
     Indication: SPINAL COLUMN STENOSIS
     Dosage: 130 MG, TID
     Route: 048
     Dates: start: 20171211
  2. METHYCOBAL [Concomitant]
     Active Substance: METHYLCOBALAMIN
     Indication: SPINAL COLUMN STENOSIS
     Dosage: 1.5 MG, TID
     Route: 048
     Dates: start: 20171211
  3. TEGAFUR,GIMERACIL,OTERACIL POTASSIUM [Suspect]
     Active Substance: GIMERACIL\OTERACIL\TEGAFUR
     Indication: GASTRIC CANCER
     Dosage: 50 MG, BID
     Route: 048
     Dates: start: 20180318, end: 20180601
  4. LIMAPROST ALFADEX [Concomitant]
     Active Substance: LIMAPROST
     Indication: SPINAL COLUMN STENOSIS
     Dosage: 15 ?G, TID
     Route: 048
     Dates: start: 20171211
  5. NIVOLUMAB [Suspect]
     Active Substance: NIVOLUMAB
     Indication: GASTRIC CANCER
     Dosage: 360 MG, Q3WK
     Route: 042
     Dates: start: 20180112
  6. OLMETEC [Concomitant]
     Active Substance: OLMESARTAN MEDOXOMIL
     Indication: HYPERTENSION
     Dosage: 20 MG, QD (AFTER BREAKFAST)
     Route: 048
     Dates: start: 20171211

REACTIONS (2)
  - Febrile neutropenia [Recovered/Resolved]
  - Adrenal insufficiency [Recovering/Resolving]

NARRATIVE: CASE EVENT DATE: 20180608
